FAERS Safety Report 4306284-2 (Version None)
Quarter: 2004Q1

REPORT INFORMATION
  Report Type: 
  Country: None (occurrence: None)
  Receive Date: 20040225
  Receipt Date: 20030425
  Transmission Date: 20041129
  Serious: No
  Sender: FDA-Public Use
  Company Number: US-BRISTOL-MYERS SQUIBB COMPANY-12258117

PATIENT
  Age: 34 Year
  Sex: Female
  Weight: 59 kg

DRUGS (2)
  1. EXCEDRIN ES TABS [Suspect]
     Indication: HEADACHE
     Route: 048
     Dates: start: 20030301, end: 20030425
  2. COUGH SYRUP [Concomitant]
     Route: 048
     Dates: start: 20030301

REACTIONS (1)
  - VOMITING [None]
